FAERS Safety Report 25224294 (Version 2)
Quarter: 2025Q2

REPORT INFORMATION
  Report Type: Spontaneous
  Country: MY (occurrence: MY)
  Receive Date: 20250422
  Receipt Date: 20250514
  Transmission Date: 20250716
  Serious: Yes (Hospitalization, Other)
  Sender: RANBAXY
  Company Number: MY-SUN PHARMACEUTICAL INDUSTRIES LTD-2025R1-504793

PATIENT
  Age: 6 Decade
  Sex: Female

DRUGS (1)
  1. WARFARIN [Suspect]
     Active Substance: WARFARIN
     Indication: Anticoagulant therapy
     Route: 065

REACTIONS (4)
  - Anticoagulant-related nephropathy [Recovering/Resolving]
  - Acute kidney injury [Recovering/Resolving]
  - Haematuria [Recovering/Resolving]
  - Anticoagulation drug level above therapeutic [Unknown]
